FAERS Safety Report 21861956 (Version 3)
Quarter: 2023Q1

REPORT INFORMATION
  Report Type: Report from Study
  Country: US (occurrence: US)
  Receive Date: 20230113
  Receipt Date: 20230214
  Transmission Date: 20230418
  Serious: Yes (Hospitalization)
  Sender: FDA-Public Use
  Company Number: US-BAUSCH-BL-2022-005530

PATIENT
  Age: 76 Year
  Sex: Female

DRUGS (3)
  1. XIFAXAN [Suspect]
     Active Substance: RIFAXIMIN
     Indication: Mental disorder
     Dosage: 550MG TWICE A DAY FOR ABOUT 2 TO 3 YEARS
     Route: 048
     Dates: end: 202201
  2. XIFAXAN [Suspect]
     Active Substance: RIFAXIMIN
     Indication: Prophylaxis
     Route: 048
     Dates: start: 202201, end: 2022
  3. XIFAXAN [Suspect]
     Active Substance: RIFAXIMIN
     Route: 048
     Dates: start: 2022

REACTIONS (5)
  - Ulcer haemorrhage [Unknown]
  - Loss of consciousness [Unknown]
  - Product supply issue [Unknown]
  - Intentional product use issue [Unknown]
  - Therapy interrupted [Unknown]

NARRATIVE: CASE EVENT DATE: 20220101
